FAERS Safety Report 18122793 (Version 1)
Quarter: 2020Q3

REPORT INFORMATION
  Report Type: Report from Study
  Country: US (occurrence: US)
  Receive Date: 20200807
  Receipt Date: 20200807
  Transmission Date: 20201103
  Serious: Yes (Hospitalization)
  Sender: FDA-Public Use
  Company Number: US-GILEAD-2020-0488966

PATIENT
  Age: 24 Year
  Sex: Female

DRUGS (24)
  1. MONTELUKAST [Concomitant]
     Active Substance: MONTELUKAST SODIUM
  2. OMEPRAZOLE. [Concomitant]
     Active Substance: OMEPRAZOLE
  3. AZELASTINE. [Concomitant]
     Active Substance: AZELASTINE HYDROCHLORIDE
  4. AZITHROMYCIN ANHYDROUS. [Concomitant]
     Active Substance: AZITHROMYCIN ANHYDROUS
  5. GAVILYTE G [Concomitant]
     Active Substance: POLYETHYLENE GLYCOL 3350\POTASSIUM CHLORIDE\SODIUM BICARBONATE\SODIUM CHLORIDE\SODIUM SULFATE ANHYDROUS
  6. LEVOFLOXACIN. [Concomitant]
     Active Substance: LEVOFLOXACIN
  7. TOBRAMYCIN. [Concomitant]
     Active Substance: TOBRAMYCIN
  8. TRESIBA [Concomitant]
     Active Substance: INSULIN DEGLUDEC
  9. AZTREONAM LYSINE [Suspect]
     Active Substance: AZTREONAM LYSINE
     Indication: CYSTIC FIBROSIS
     Dosage: UNK, TID; 28 D ON, THEN 28 D OFF
     Route: 055
     Dates: start: 20161129
  10. CIPROFLOXACIN. [Concomitant]
     Active Substance: CIPROFLOXACIN
  11. CREON [Concomitant]
     Active Substance: PANCRELIPASE AMYLASE\PANCRELIPASE LIPASE\PANCRELIPASE PROTEASE
  12. FLUTICASONE. [Concomitant]
     Active Substance: FLUTICASONE
  13. GLUCAGON. [Concomitant]
     Active Substance: GLUCAGON
  14. KALYDECO [Concomitant]
     Active Substance: IVACAFTOR
  15. NOVOLOG [Concomitant]
     Active Substance: INSULIN ASPART
  16. PULMOZYME [Concomitant]
     Active Substance: DORNASE ALFA
  17. ALBUTEROL [SALBUTAMOL] [Concomitant]
     Active Substance: ALBUTEROL
  18. DOXYCYCLIN [DOXYCYCLINE HYCLATE] [Concomitant]
  19. ADVAIR HFA [Concomitant]
     Active Substance: FLUTICASONE PROPIONATE\SALMETEROL XINAFOATE
  20. DOXYCYCLIN [DOXYCYCLINE MONOHYDRATE] [Concomitant]
  21. PREVACID [Concomitant]
     Active Substance: LANSOPRAZOLE
  22. NOVOLOG [Concomitant]
     Active Substance: INSULIN ASPART
  23. PREDNISONE. [Concomitant]
     Active Substance: PREDNISONE
  24. TRI?LO?SPRINTEC [Concomitant]
     Active Substance: ETHINYL ESTRADIOL\NORGESTIMATE

REACTIONS (1)
  - Cystic fibrosis respiratory infection suppression [Not Recovered/Not Resolved]

NARRATIVE: CASE EVENT DATE: 20200731
